FAERS Safety Report 9015865 (Version 1)
Quarter: 2013Q1

REPORT INFORMATION
  Report Type: Report from Study
  Country: AU (occurrence: AU)
  Receive Date: 20130116
  Receipt Date: 20130116
  Transmission Date: 20140127
  Serious: Yes (Other)
  Sender: FDA-Public Use
  Company Number: AU-ROCHE-1179708

PATIENT
  Sex: Female

DRUGS (13)
  1. ACTEMRA [Suspect]
     Indication: RHEUMATOID ARTHRITIS
     Route: 042
     Dates: start: 20121217
  2. APO-DIAZEPAM [Concomitant]
     Route: 065
  3. ENDEP [Concomitant]
     Route: 065
  4. MOBIC [Concomitant]
     Route: 065
  5. NEXIUM [Concomitant]
     Route: 065
  6. PANAFCORTELONE [Concomitant]
     Route: 065
  7. PRISTIQ [Concomitant]
     Route: 065
  8. TARGIN [Concomitant]
     Route: 065
  9. APO-LEFLUNOMIDE [Concomitant]
     Route: 065
  10. FOLIC ACID [Concomitant]
  11. PANADEINE FORTE [Concomitant]
  12. FRUSEMIDE [Concomitant]
     Route: 065
  13. VITAMIN B12 [Concomitant]
     Route: 065

REACTIONS (2)
  - Dysuria [Recovered/Resolved]
  - Blood urine present [Recovered/Resolved]
